FAERS Safety Report 14730703 (Version 2)
Quarter: 2018Q3

REPORT INFORMATION
  Report Type: Spontaneous
  Country: GB (occurrence: BG)
  Receive Date: 20180406
  Receipt Date: 20180713
  Transmission Date: 20181010
  Serious: Yes (Death, Other)
  Sender: FDA-Public Use
  Company Number: BG-FRESENIUS KABI-FK201804027

PATIENT
  Age: 55 Year
  Sex: Female
  Weight: 58 kg

DRUGS (6)
  1. CARBOPLATIN. [Interacting]
     Active Substance: CARBOPLATIN
     Indication: ADRENOCORTICAL CARCINOMA
     Route: 065
  2. CISPLATIN. [Concomitant]
     Active Substance: CISPLATIN
     Indication: ADRENOCORTICAL CARCINOMA
     Route: 065
     Dates: end: 20171223
  3. EPIRUBICIN [Concomitant]
     Active Substance: EPIRUBICIN
     Indication: ADRENOCORTICAL CARCINOMA
     Route: 065
     Dates: end: 20171223
  4. LYSODREN [Interacting]
     Active Substance: MITOTANE
     Indication: ADRENOCORTICAL CARCINOMA
     Route: 065
     Dates: end: 20171223
  5. PACLITAXEL (MANUFACTURER UNKNOWN) [Suspect]
     Active Substance: PACLITAXEL
     Indication: ADRENOCORTICAL CARCINOMA
     Dosage: UNKNOWN
     Route: 065
     Dates: start: 20171220, end: 20171223
  6. ETOPOSIDE. [Concomitant]
     Active Substance: ETOPOSIDE
     Indication: ADRENOCORTICAL CARCINOMA
     Route: 065
     Dates: end: 20171223

REACTIONS (5)
  - Product use in unapproved indication [Unknown]
  - Pancytopenia [Unknown]
  - Malignant neoplasm progression [Fatal]
  - Drug interaction [Unknown]
  - Drug level below therapeutic [Unknown]

NARRATIVE: CASE EVENT DATE: 20171223
